FAERS Safety Report 4316468-5 (Version None)
Quarter: 2004Q1

REPORT INFORMATION
  Report Type: 
  Country: None (occurrence: None)
  Receive Date: 20040311
  Receipt Date: 20040226
  Transmission Date: 20041129
  Serious: Yes (Other)
  Sender: FDA-Public Use
  Company Number: 2004200978IN

PATIENT
  Sex: Male

DRUGS (4)
  1. MEDROL [Suspect]
     Indication: NEPHROTIC SYNDROME
     Dosage: 16 MG BID ORAL
     Route: 048
     Dates: start: 20040128, end: 20040204
  2. OMEPRAZOLE [Concomitant]
  3. FUROSEMIDE [Concomitant]
  4. PREDNISOLONE [Concomitant]

REACTIONS (2)
  - FEELING ABNORMAL [None]
  - PYODERMA [None]
